FAERS Safety Report 10554872 (Version 2)
Quarter: 2014Q4

REPORT INFORMATION
  Report Type: Spontaneous
  Country: US (occurrence: US)
  Receive Date: 20141030
  Receipt Date: 20141113
  Transmission Date: 20150529
  Serious: No
  Sender: FDA-Public Use
  Company Number: US-009507513-1410USA015505

PATIENT
  Sex: Female
  Weight: 73.9 kg

DRUGS (1)
  1. NEXPLANON [Suspect]
     Active Substance: ETONOGESTREL
     Dosage: 68 MG, EVERY 3 YEARS
     Route: 059
     Dates: start: 20141017

REACTIONS (2)
  - Device kink [Unknown]
  - No adverse event [Unknown]

NARRATIVE: CASE EVENT DATE: 2014
